FAERS Safety Report 9355416 (Version 1)
Quarter: 2013Q2

REPORT INFORMATION
  Report Type: Spontaneous
  Country: US (occurrence: US)
  Receive Date: 20130619
  Receipt Date: 20130619
  Transmission Date: 20140414
  Serious: Yes (Hospitalization)
  Sender: FDA-Public Use
  Company Number: US-JNJFOC-20130603604

PATIENT
  Age: 2 Year
  Sex: Male

DRUGS (1)
  1. CHILDREN^S TYLENOL [Suspect]
     Indication: ACCIDENTAL EXPOSURE TO PRODUCT
     Dosage: ENTIRE BOTTLE
     Route: 048
     Dates: start: 20130326

REACTIONS (3)
  - Toxicity to various agents [Unknown]
  - Accidental exposure to product by child [Unknown]
  - Failure of child resistant mechanism for pharmaceutical product [Unknown]
